FAERS Safety Report 9975090 (Version 1)
Quarter: 2014Q1

REPORT INFORMATION
  Report Type: Spontaneous
  Country: SE (occurrence: SE)
  Receive Date: 20140306
  Receipt Date: 20140306
  Transmission Date: 20141002
  Serious: Yes (Hospitalization)
  Sender: FDA-Public Use
  Company Number: SE-TEVA-464620ISR

PATIENT
  Age: 62 Year
  Sex: Female

DRUGS (1)
  1. OXASCAND 10 MG TABLETT [Suspect]
     Dosage: 19 TABLET DAILY; PRESCRIPTION FOR NO MORE THEN THREE TABLETS

REACTIONS (4)
  - Toxicity to various agents [Recovered/Resolved]
  - Fatigue [Recovered/Resolved]
  - Dysarthria [Recovered/Resolved]
  - Self injurious behaviour [Recovered/Resolved]
